FAERS Safety Report 8967763 (Version 1)
Quarter: 2012Q4

REPORT INFORMATION
  Report Type: Spontaneous
  Country: MX (occurrence: None)
  Receive Date: 20121207
  Receipt Date: 20121207
  Transmission Date: 20130627
  Serious: Yes (Death)
  Sender: FDA-Public Use
  Company Number: ENTC2012-0539

PATIENT
  Age: 90 Year
  Sex: Female

DRUGS (4)
  1. STALEVO [Suspect]
     Indication: PARKINSON^S DISEASE
     Dosage: 50/12.5/200 mg (1 dosage from, 1 in 1d)
     Route: 048
  2. LEVOTHYROXINE [Concomitant]
  3. CAPTOPRIL [Concomitant]
  4. NEXIUM [Concomitant]

REACTIONS (9)
  - Respiratory arrest [None]
  - Body temperature increased [None]
  - Oral fungal infection [None]
  - Decreased appetite [None]
  - Defaecation urgency [None]
  - Restlessness [None]
  - Flank pain [None]
  - Blunted affect [None]
  - Fatigue [None]
